FAERS Safety Report 5158498-X (Version None)
Quarter: 2006Q4

REPORT INFORMATION
  Report Type: 
  Country: None (occurrence: None)
  Receive Date: 20061117
  Receipt Date: 20061106
  Transmission Date: 20070319
  Serious: Yes (Hospitalization)
  Sender: FDA-Public Use
  Company Number: FRWYE946918SEP06

PATIENT
  Age: 77 Year
  Sex: Female

DRUGS (5)
  1. EFFEXOR [Suspect]
     Route: 048
     Dates: start: 20060715, end: 20060731
  2. ZOLPIDEM TARTRATE [Concomitant]
  3. COTAREG (HDYROCHLOROTHIAZIDE/VALSARTAN) [Concomitant]
  4. LIPANOR (CIPROFIBRATE) [Concomitant]
  5. METFORMIN HYDROCHLORIDE [Concomitant]

REACTIONS (13)
  - ADRENAL DISORDER [None]
  - ANTI-THYROID ANTIBODY POSITIVE [None]
  - AUTOIMMUNE THYROIDITIS [None]
  - BLOOD THYROID STIMULATING HORMONE DECREASED [None]
  - C-REACTIVE PROTEIN INCREASED [None]
  - CALCINOSIS [None]
  - CONDITION AGGRAVATED [None]
  - INCOHERENT [None]
  - LEUKOENCEPHALOPATHY [None]
  - PERSECUTORY DELUSION [None]
  - SPEECH DISORDER [None]
  - THYROID MASS [None]
  - VASCULAR ENCEPHALOPATHY [None]
